FAERS Safety Report 23617720 (Version 2)
Quarter: 2024Q1

REPORT INFORMATION
  Report Type: Report from Study
  Country: US (occurrence: US)
  Receive Date: 20240311
  Receipt Date: 20240314
  Transmission Date: 20240410
  Serious: Yes (Life-Threatening, Hospitalization, Other)
  Sender: FDA-Public Use
  Company Number: US-MYLANLABS-2024M1008706

PATIENT
  Age: 91 Year
  Sex: Female
  Weight: 54.9 kg

DRUGS (21)
  1. ZOLOFT [Suspect]
     Active Substance: SERTRALINE HYDROCHLORIDE
     Indication: Depression
     Dosage: UNK
     Route: 065
     Dates: start: 20240102, end: 202401
  2. ZOLOFT [Suspect]
     Active Substance: SERTRALINE HYDROCHLORIDE
     Dosage: UNK (RESTRATED)
     Route: 065
     Dates: start: 20240110
  3. TYVASO [Suspect]
     Active Substance: TREPROSTINIL
     Indication: Pulmonary arterial hypertension
     Dosage: 18 MICROGRAM, QID
     Route: 055
     Dates: start: 20240101, end: 20240101
  4. TYVASO [Suspect]
     Active Substance: TREPROSTINIL
     Dosage: 12 MICROGRAM, QID
     Route: 055
     Dates: start: 20240101, end: 20240101
  5. TYVASO [Suspect]
     Active Substance: TREPROSTINIL
     Dosage: UNK
     Route: 055
     Dates: start: 20240108
  6. TYVASO [Suspect]
     Active Substance: TREPROSTINIL
     Dosage: 24 MICROGRAM, QID (4 BREATHS)
     Route: 055
     Dates: start: 20240126, end: 202402
  7. TYVASO [Suspect]
     Active Substance: TREPROSTINIL
     Dosage: UNK, QID (4 BREATHS)
     Route: 055
     Dates: start: 20240131
  8. TYVASO [Suspect]
     Active Substance: TREPROSTINIL
     Dosage: 24 MICROGRAM, QID (4 BREATHS)
     Route: 055
     Dates: start: 202402
  9. TYVASO [Suspect]
     Active Substance: TREPROSTINIL
     Dosage: 30 MICROGRAM, QID (5 BREATHS)
     Route: 055
     Dates: start: 202402, end: 202402
  10. ELIQUIS [Suspect]
     Active Substance: APIXABAN
     Indication: Product used for unknown indication
     Dosage: UNK
     Route: 065
  11. COENZYME Q10 [Concomitant]
     Active Substance: DIETARY SUPPLEMENT\UBIDECARENONE
     Dosage: UNK
     Route: 065
  12. POTASSIUM CHLORIDE [Concomitant]
     Active Substance: POTASSIUM CHLORIDE
     Dosage: UNK
     Route: 065
  13. SILDENAFIL CITRATE [Concomitant]
     Active Substance: SILDENAFIL CITRATE
     Dosage: UNK
     Route: 065
  14. METOPROLOL SUCCINATE [Concomitant]
     Active Substance: METOPROLOL SUCCINATE
     Indication: Product used for unknown indication
     Dosage: UNK
     Route: 065
  15. VITAMIN D3 [Concomitant]
     Active Substance: CHOLECALCIFEROL
     Dosage: UNK
     Route: 065
  16. OXYGEN [Concomitant]
     Active Substance: OXYGEN
     Dosage: UNK
     Route: 065
  17. ACETAMINOPHEN [Concomitant]
     Active Substance: ACETAMINOPHEN
     Dosage: UNK
     Route: 065
  18. OMEPRAZOLE [Concomitant]
     Active Substance: OMEPRAZOLE
     Dosage: UNK
     Route: 065
  19. FERROUS SULFATE [Concomitant]
     Active Substance: FERROUS SULFATE
     Indication: Product used for unknown indication
     Dosage: UNK
     Route: 065
  20. TORSEMIDE [Concomitant]
     Active Substance: TORSEMIDE
     Dosage: UNK
     Route: 065
  21. ESTRADIOL [Concomitant]
     Active Substance: ESTRADIOL
     Dosage: UNK
     Route: 065

REACTIONS (16)
  - Unresponsive to stimuli [Unknown]
  - Tricuspid valve incompetence [Unknown]
  - Fluid retention [Unknown]
  - Atrial fibrillation [Unknown]
  - Blood pressure decreased [Recovering/Resolving]
  - Head titubation [Unknown]
  - Asthenia [Not Recovered/Not Resolved]
  - Throat irritation [Recovered/Resolved]
  - Cough [Unknown]
  - Nocturnal dyspnoea [Unknown]
  - Eye movement disorder [Unknown]
  - Depression [Unknown]
  - Weight increased [Unknown]
  - Headache [Unknown]
  - Fatigue [Unknown]
  - Dizziness [Unknown]

NARRATIVE: CASE EVENT DATE: 20240101
